FAERS Safety Report 24689042 (Version 1)
Quarter: 2024Q4

REPORT INFORMATION
  Report Type: Report from Study
  Country: CN (occurrence: CN)
  Receive Date: 20241203
  Receipt Date: 20241203
  Transmission Date: 20250115
  Serious: Yes (Death, Other)
  Sender: ROCHE
  Company Number: CN-ROCHE-10000145786

PATIENT

DRUGS (3)
  1. MYCOPHENOLATE MOFETIL [Suspect]
     Active Substance: MYCOPHENOLATE MOFETIL
     Indication: Prophylaxis against transplant rejection
     Route: 065
  2. TACROLIMUS [Suspect]
     Active Substance: TACROLIMUS
     Indication: Prophylaxis against transplant rejection
     Route: 048
  3. PREDNISONE [Suspect]
     Active Substance: PREDNISONE
     Indication: Prophylaxis against transplant rejection
     Route: 065

REACTIONS (12)
  - Cardiac failure acute [Fatal]
  - Acute kidney injury [Unknown]
  - Bacterial infection [Fatal]
  - Cerebral haemorrhage [Fatal]
  - Pneumocystis jirovecii pneumonia [Fatal]
  - Respiratory failure [Fatal]
  - Renal embolism [Fatal]
  - Haemoptysis [Fatal]
  - Acute myocardial infarction [Recovered/Resolved]
  - Atrial fibrillation [Recovered/Resolved]
  - Bronchopulmonary aspergillosis [Fatal]
  - Infective spondylitis [Fatal]
